FAERS Safety Report 8330266-7 (Version None)
Quarter: 2012Q2

REPORT INFORMATION
  Report Type: 
  Country: None (occurrence: None)
  Receive Date: 20120502
  Receipt Date: 20120417
  Transmission Date: 20120825
  Serious: Yes (Other)
  Sender: FDA-Public Use
  Company Number: CHPA2012US009637

PATIENT
  Sex: Female

DRUGS (2)
  1. EXCEDRIN (MIGRAINE) [Suspect]
     Dosage: 3 DF, QD
     Route: 048
     Dates: start: 20100101, end: 20100101
  2. EXCEDRIN (MIGRAINE) [Suspect]
     Indication: MIGRAINE
     Dosage: 1-2 DF, PRN
     Route: 048

REACTIONS (9)
  - PYREXIA [None]
  - HYPERHIDROSIS [None]
  - UNDERDOSE [None]
  - FREQUENT BOWEL MOVEMENTS [None]
  - NAUSEA [None]
  - HEART RATE INCREASED [None]
  - INFLUENZA LIKE ILLNESS [None]
  - PHARYNGITIS STREPTOCOCCAL [None]
  - OVERDOSE [None]
